FAERS Safety Report 5178800-2 (Version None)
Quarter: 2006Q4

REPORT INFORMATION
  Report Type: 
  Country: None (occurrence: None)
  Receive Date: 20061218
  Receipt Date: 20060809
  Transmission Date: 20070319
  Serious: No
  Sender: FDA-Public Use
  Company Number: US-AMGEN-KDL189601

PATIENT
  Sex: Female

DRUGS (2)
  1. ENBREL [Suspect]
     Indication: RHEUMATOID ARTHRITIS
     Route: 058
     Dates: start: 20060607
  2. METHOTREXATE [Concomitant]
     Route: 058
     Dates: start: 20060607

REACTIONS (4)
  - DYSPHONIA [None]
  - LIP BLISTER [None]
  - RHEUMATOID ARTHRITIS [None]
  - THIRST [None]
